FAERS Safety Report 10182444 (Version 1)
Quarter: 2014Q2

REPORT INFORMATION
  Report Type: Spontaneous
  Country: US (occurrence: US)
  Receive Date: 20140520
  Receipt Date: 20140520
  Transmission Date: 20141212
  Serious: Yes (Other)
  Sender: FDA-Public Use
  Company Number: US-ASTELLAS-2014US005539

PATIENT
  Age: 72 Year
  Sex: Female

DRUGS (6)
  1. TARCEVA [Suspect]
     Indication: LUNG NEOPLASM MALIGNANT
     Route: 048
  2. TARCEVA [Suspect]
     Dosage: 150 UNK, UNK
     Route: 048
     Dates: start: 20120531
  3. AMLODIPINE [Concomitant]
     Indication: PRODUCT USED FOR UNKNOWN INDICATION
     Route: 065
  4. FOLIC ACID [Concomitant]
     Indication: PRODUCT USED FOR UNKNOWN INDICATION
     Route: 065
  5. LOSARTAN [Concomitant]
     Indication: PRODUCT USED FOR UNKNOWN INDICATION
     Dosage: 50/12.05 DF, UNKNOWN FREQ.
     Route: 065
  6. DEXAMETHASONE [Concomitant]
     Indication: PRODUCT USED FOR UNKNOWN INDICATION
     Route: 065

REACTIONS (9)
  - Lacrimation increased [Not Recovered/Not Resolved]
  - Stomatitis [Recovering/Resolving]
  - Rash [Recovering/Resolving]
  - Diarrhoea [Unknown]
  - Acne [Unknown]
  - Skin ulcer [Recovering/Resolving]
  - Eye discharge [Unknown]
  - Dry skin [Unknown]
  - Skin burning sensation [Unknown]
